FAERS Safety Report 18781665 (Version 1)
Quarter: 2021Q1

REPORT INFORMATION
  Report Type: Spontaneous
  Country: US (occurrence: US)
  Receive Date: 20210125
  Receipt Date: 20210125
  Transmission Date: 20210419
  Serious: Yes (Death)
  Sender: FDA-Public Use
  Company Number: None

PATIENT
  Age: 78 Year
  Sex: Female

DRUGS (2)
  1. PRALUENT [Suspect]
     Active Substance: ALIROCUMAB
     Indication: HYPERLIPIDAEMIA
     Dosage: ?          OTHER FREQUENCY:EVERY 2 WEEKS;?
     Route: 058
     Dates: start: 20191220, end: 20210122
  2. MYCOPHENOLATE 500MG [Concomitant]
     Active Substance: MYCOPHENOLIC ACID
     Dates: start: 20200312

REACTIONS (1)
  - Death [None]

NARRATIVE: CASE EVENT DATE: 20210124
